FAERS Safety Report 16010078 (Version 1)
Quarter: 2019Q1

REPORT INFORMATION
  Report Type: Report from Study
  Country: US (occurrence: US)
  Receive Date: 20190227
  Receipt Date: 20190227
  Transmission Date: 20190418
  Serious: Yes (Death, Hospitalization, Other)
  Sender: FDA-Public Use
  Company Number: US-ROCHE-2271647

PATIENT
  Age: 50 Year
  Sex: Male

DRUGS (4)
  1. LYRICA [Concomitant]
     Active Substance: PREGABALIN
  2. OCREVUS [Suspect]
     Active Substance: OCRELIZUMAB
     Indication: SECONDARY PROGRESSIVE MULTIPLE SCLEROSIS
     Dosage: ONGOING:NO
     Route: 042
     Dates: start: 20180925
  3. BACLOFEN. [Concomitant]
     Active Substance: BACLOFEN
  4. OCREVUS [Suspect]
     Active Substance: OCRELIZUMAB
     Dosage: ONGOING:NO
     Route: 042
     Dates: start: 20181009

REACTIONS (7)
  - Intentional product use issue [Unknown]
  - Vomiting [Unknown]
  - Pulmonary embolism [Fatal]
  - Uraemic encephalopathy [Unknown]
  - Cardiac arrest [Fatal]
  - Pneumonia [Unknown]
  - Off label use [Unknown]

NARRATIVE: CASE EVENT DATE: 20181125
